FAERS Safety Report 7256694-9 (Version None)
Quarter: 2011Q1

REPORT INFORMATION
  Report Type: 
  Country: None (occurrence: None)
  Receive Date: 20110129
  Receipt Date: 20100810
  Transmission Date: 20110831
  Serious: No
  Sender: FDA-Public Use
  Company Number: US-ABBOTT-10P-163-0663211-00

PATIENT
  Age: 51 Year
  Sex: Male

DRUGS (6)
  1. VITAMIN B [Concomitant]
     Indication: VITAMIN SUPPLEMENTATION
  2. OTC CLARITIN [Concomitant]
     Indication: HYPERSENSITIVITY
  3. HUMIRA [Suspect]
     Indication: CROHN'S DISEASE
     Dates: start: 20100701
  4. CELEXA [Concomitant]
     Indication: DEPRESSION
  5. FOLIC ACID [Concomitant]
     Indication: PRODUCT USED FOR UNKNOWN INDICATION
  6. LOVAZA [Concomitant]
     Indication: ALOPECIA
     Dosage: SMALLEST DOSE FOR HAIRLOSS

REACTIONS (1)
  - INCORRECT DOSE ADMINISTERED [None]
